FAERS Safety Report 9612772 (Version 1)
Quarter: 2013Q4

REPORT INFORMATION
  Report Type: Report from Study
  Country: US (occurrence: US)
  Receive Date: 20131010
  Receipt Date: 20131010
  Transmission Date: 20140711
  Serious: Yes (Congenital Anomaly, Other)
  Sender: FDA-Public Use
  Company Number: PHHY2013US113070

PATIENT
  Sex: Male

DRUGS (1)
  1. GILENYA [Suspect]
     Indication: MULTIPLE SCLEROSIS
     Dosage: 0.5 MG, QD: MATERNAL DOSE
     Route: 064

REACTIONS (3)
  - Deformity [Unknown]
  - Congenital anomaly [Unknown]
  - Gastrooesophageal reflux disease [Recovering/Resolving]
